FAERS Safety Report 12694095 (Version 2)
Quarter: 2016Q3

REPORT INFORMATION
  Report Type: Spontaneous
  Country: JP (occurrence: JP)
  Receive Date: 20160829
  Receipt Date: 20160902
  Transmission Date: 20161109
  Serious: Yes (Death, Hospitalization)
  Sender: FDA-Public Use
  Company Number: JP-ASTRAZENECA-2016SE91357

PATIENT
  Age: 72 Year
  Sex: Male

DRUGS (8)
  1. MEROPEN [Suspect]
     Active Substance: MEROPENEM
     Indication: ESCHERICHIA URINARY TRACT INFECTION
     Route: 041
  2. MEROPEN [Suspect]
     Active Substance: MEROPENEM
     Indication: ESCHERICHIA URINARY TRACT INFECTION
     Route: 041
  3. MEROPEN [Suspect]
     Active Substance: MEROPENEM
     Indication: STAPHYLOCOCCAL INFECTION
     Route: 041
  4. MEROPEN [Suspect]
     Active Substance: MEROPENEM
     Indication: STAPHYLOCOCCAL INFECTION
     Route: 041
  5. MEROPEN [Suspect]
     Active Substance: MEROPENEM
     Indication: PSEUDOMONAS INFECTION
     Route: 041
  6. VANCOMYCIN HYDROCHLORIDE. [Suspect]
     Active Substance: VANCOMYCIN HYDROCHLORIDE
     Indication: STAPHYLOCOCCAL INFECTION
     Route: 065
  7. VANCOMYCIN HYDROCHLORIDE. [Suspect]
     Active Substance: VANCOMYCIN HYDROCHLORIDE
     Indication: PSEUDOMONAS INFECTION
     Route: 065
  8. MEROPEN [Suspect]
     Active Substance: MEROPENEM
     Indication: PSEUDOMONAS INFECTION
     Route: 041

REACTIONS (1)
  - Pseudomembranous colitis [Fatal]
